FAERS Safety Report 4695251-5 (Version None)
Quarter: 2005Q2

REPORT INFORMATION
  Report Type: 
  Country: None (occurrence: None)
  Receive Date: 20050613
  Receipt Date: 20050329
  Transmission Date: 20051028
  Serious: No
  Sender: FDA-Public Use
  Company Number: 2005-00635

PATIENT
  Age: 68 Year
  Sex: Male
  Weight: 68.5 kg

DRUGS (13)
  1. VELCADE [Suspect]
     Indication: MULTIPLE MYELOMA
     Dosage: 2.30 MG, 2/WEEK, IV BOLUS
     Route: 040
     Dates: start: 20050303
  2. DILANTIN [Concomitant]
  3. LAMICTAL [Concomitant]
  4. EPOETIN ALFA (EPOETIN ALFA) [Concomitant]
  5. SERTRALINE HCL [Concomitant]
  6. FOLATE SODIUM (FOLATE SODIUM) [Concomitant]
  7. FERROUS SULFATE TAB [Concomitant]
  8. ASPIRIN [Concomitant]
  9. TOPROL-XL [Concomitant]
  10. VICODIN (PARACETAMOL, HYDROCODONE BITRATRATE) [Concomitant]
  11. DOCUSATE SODIUM (DOCUSATE SODIUM) [Concomitant]
  12. OMEPRAZOLE [Concomitant]
  13. ZOMETA [Concomitant]

REACTIONS (2)
  - CONVULSION [None]
  - DRUG LEVEL BELOW THERAPEUTIC [None]
